FAERS Safety Report 5442347-6 (Version None)
Quarter: 2007Q3

REPORT INFORMATION
  Report Type: 
  Country: None (occurrence: None)
  Receive Date: 20070904
  Receipt Date: 20051201
  Transmission Date: 20080115
  Serious: Yes (Hospitalization)
  Sender: FDA-Public Use
  Company Number: US-PFIZER INC-2003173661US

PATIENT
  Sex: Female
  Weight: 72.6 kg

DRUGS (5)
  1. CELECOXIB [Suspect]
     Indication: COLON CANCER
     Route: 048
     Dates: start: 20030718, end: 20030819
  2. CAMPTOSAR [Suspect]
     Indication: COLON CANCER
     Route: 042
     Dates: start: 20030718, end: 20030808
  3. XELODA [Suspect]
     Indication: COLON CANCER
     Route: 048
     Dates: start: 20030718, end: 20030819
  4. LOPERAMIDE HYDROCHLORIDE [Concomitant]
     Indication: DIARRHOEA
     Route: 048
     Dates: start: 20030727, end: 20030819
  5. ATACAND [Concomitant]
     Indication: HYPERTENSION
     Route: 048
     Dates: start: 20020701

REACTIONS (3)
  - DEEP VEIN THROMBOSIS [None]
  - ENTEROCOLITIS [None]
  - FEBRILE NEUTROPENIA [None]
